FAERS Safety Report 5036163-7 (Version None)
Quarter: 2006Q2

REPORT INFORMATION
  Report Type: 
  Country: None (occurrence: None)
  Receive Date: 20060531
  Receipt Date: 20060404
  Transmission Date: 20061013
  Serious: No
  Sender: FDA-Public Use
  Company Number: PHEH2006US02896

PATIENT
  Age: 59 Year
  Sex: Male

DRUGS (1)
  1. EXJADE [Suspect]
     Indication: BLOOD IRON INCREASED
     Dosage: 200 MG QD ORAL
     Route: 048
     Dates: start: 20060209, end: 20060215

REACTIONS (2)
  - HYPERSENSITIVITY [None]
  - RASH GENERALISED [None]
